FAERS Safety Report 17666103 (Version 7)
Quarter: 2022Q2

REPORT INFORMATION
  Report Type: Spontaneous
  Country: US (occurrence: US)
  Receive Date: 20200414
  Receipt Date: 20220408
  Transmission Date: 20220720
  Serious: No
  Sender: FDA-Public Use
  Company Number: US-PFIZER INC-2020078955

PATIENT
  Age: 59 Year
  Sex: Female
  Weight: 85.28 kg

DRUGS (6)
  1. XELJANZ XR [Suspect]
     Active Substance: TOFACITINIB CITRATE
     Indication: Rheumatoid arthritis
     Dosage: 11 MG, 1X/DAY
     Route: 048
     Dates: start: 201904, end: 20200128
  2. XELJANZ XR [Suspect]
     Active Substance: TOFACITINIB CITRATE
     Dosage: 11 MG, 1X/DAY
     Route: 048
     Dates: start: 201904, end: 20200501
  3. PLAQUENIL [Concomitant]
     Active Substance: HYDROXYCHLOROQUINE SULFATE
     Indication: Rheumatoid arthritis
     Dosage: UNK
  4. METHOTREXATE [Concomitant]
     Active Substance: METHOTREXATE
     Indication: Rheumatoid arthritis
     Dosage: 8 DF, WEEKLY (8 PILLS ONE DAY A WEEK / 8 PILLS WEEKLY)
     Dates: start: 1995
  5. LEUCOVORIN [Concomitant]
     Active Substance: LEUCOVORIN
     Indication: Rheumatoid arthritis
     Dosage: UNK
  6. LEUCOVORIN [Concomitant]
     Active Substance: LEUCOVORIN
     Indication: Furuncle

REACTIONS (3)
  - Product dose omission in error [Unknown]
  - Condition aggravated [Unknown]
  - Pain [Unknown]
